FAERS Safety Report 13969920 (Version 1)
Quarter: 2017Q3

REPORT INFORMATION
  Report Type: Spontaneous
  Country: US (occurrence: US)
  Receive Date: 20170914
  Receipt Date: 20170914
  Transmission Date: 20171128
  Serious: No
  Sender: FDA-Public Use
  Company Number: US-ASTELLAS-2016US047280

PATIENT
  Sex: Male

DRUGS (1)
  1. XTANDI [Suspect]
     Active Substance: ENZALUTAMIDE
     Indication: PROSTATE CANCER
     Dosage: 160 MG, ONCE DAILY WITH OR WITHOUT FOOD AS DIRECTED
     Route: 048
     Dates: start: 20160621, end: 20161220

REACTIONS (2)
  - Prostatic specific antigen increased [Unknown]
  - Drug dose omission [Unknown]
